FAERS Safety Report 6801572-X (Version None)
Quarter: 2010Q2

REPORT INFORMATION
  Report Type: 
  Country: None (occurrence: None)
  Receive Date: 20100629
  Receipt Date: 20100618
  Transmission Date: 20101027
  Serious: Yes (Other)
  Sender: FDA-Public Use
  Company Number: IT-JNJFOC-20090903848

PATIENT
  Age: 32 Year
  Sex: Male

DRUGS (6)
  1. REMICADE [Suspect]
     Indication: JUVENILE ARTHRITIS
     Route: 042
     Dates: end: 20090903
  2. REMICADE [Suspect]
     Route: 042
     Dates: end: 20090903
  3. REMICADE [Suspect]
     Route: 042
     Dates: end: 20090903
  4. CORTOP [Concomitant]
     Indication: PREMEDICATION
     Route: 042
  5. CHLORPHENAMINE [Concomitant]
     Indication: PREMEDICATION
     Route: 030
  6. PERFALGAN [Concomitant]
     Indication: PREMEDICATION
     Route: 042

REACTIONS (13)
  - CYANOSIS [None]
  - DIARRHOEA [None]
  - DYSPNOEA [None]
  - FACE OEDEMA [None]
  - HYPERSENSITIVITY [None]
  - INFUSION RELATED REACTION [None]
  - NAUSEA [None]
  - PARAESTHESIA ORAL [None]
  - RASH [None]
  - RETCHING [None]
  - TACHYCARDIA [None]
  - THROAT TIGHTNESS [None]
  - TONGUE OEDEMA [None]
